FAERS Safety Report 21792663 (Version 1)
Quarter: 2022Q4

REPORT INFORMATION
  Report Type: Spontaneous
  Country: US (occurrence: US)
  Receive Date: 20221229
  Receipt Date: 20221229
  Transmission Date: 20230112
  Serious: Yes (Disabling, Other)
  Sender: FDA-Public Use
  Company Number: US-SA-SAC20221226000610

PATIENT
  Age: 56 Year
  Sex: Female

DRUGS (1)
  1. AUBAGIO [Suspect]
     Active Substance: TERIFLUNOMIDE
     Indication: Multiple sclerosis
     Dosage: 14 MG
     Route: 048
     Dates: start: 20220317

REACTIONS (4)
  - Fatigue [Unknown]
  - Cognitive disorder [Unknown]
  - Condition aggravated [Unknown]
  - Viral infection [Unknown]

NARRATIVE: CASE EVENT DATE: 20220101
